FAERS Safety Report 6312482-9 (Version None)
Quarter: 2009Q3

REPORT INFORMATION
  Report Type: 
  Country: None (occurrence: None)
  Receive Date: 20090813
  Receipt Date: 20090728
  Transmission Date: 20100115
  Serious: Yes (Disabling, Other)
  Sender: FDA-Public Use
  Company Number: 1-18694887

PATIENT
  Sex: Female

DRUGS (1)
  1. CLOBETASOL PROPIONATE [Suspect]
     Indication: SKIN IRRITATION
     Dosage: TOPICAL
     Route: 061
     Dates: start: 20070227, end: 20070302

REACTIONS (16)
  - ABASIA [None]
  - ACTIVITIES OF DAILY LIVING IMPAIRED [None]
  - ANXIETY [None]
  - ARTHRALGIA [None]
  - CHEMICAL BURN OF SKIN [None]
  - COMPLEX REGIONAL PAIN SYNDROME [None]
  - DEFORMITY [None]
  - DISCOMFORT [None]
  - ERYTHEMA [None]
  - FOREIGN BODY REACTION [None]
  - MUSCULAR WEAKNESS [None]
  - NERVE INJURY [None]
  - OEDEMA PERIPHERAL [None]
  - PAIN [None]
  - SKIN DISCOLOURATION [None]
  - SOFT TISSUE DISORDER [None]
